FAERS Safety Report 6826340-4 (Version None)
Quarter: 2010Q3

REPORT INFORMATION
  Report Type: 
  Country: None (occurrence: None)
  Receive Date: 20100709
  Receipt Date: 20100707
  Transmission Date: 20110219
  Serious: Yes (Death, Other)
  Sender: FDA-Public Use
  Company Number: PHHY2010CA08309

PATIENT
  Sex: Male
  Weight: 89 kg

DRUGS (10)
  1. EXJADE [Suspect]
     Indication: MYELODYSPLASTIC SYNDROME
     Dosage: 1750 MG, QD
     Route: 048
     Dates: start: 20100127
  2. EXJADE [Suspect]
     Dosage: 1500 MG, UNK
     Route: 048
  3. EXJADE [Suspect]
     Dosage: 1750 MG, UNK
     Route: 048
  4. EXJADE [Suspect]
     Dosage: 1000 MG, UNK
     Route: 048
     Dates: end: 20100221
  5. EXJADE [Suspect]
     Dosage: 1250 MG, QD
     Route: 048
     Dates: end: 20100222
  6. DIOVAN [Concomitant]
     Indication: HYPERTENSION
     Dosage: 80 MG/DAY
     Route: 048
  7. FLOMAX [Concomitant]
     Indication: BENIGN PROSTATIC HYPERPLASIA
     Dosage: 0.4 MG/DAY
     Route: 048
  8. PANTOPRAZOLE [Concomitant]
     Indication: GASTROOESOPHAGEAL REFLUX DISEASE
     Dosage: 40 MG/DAY
     Route: 048
  9. PENDANOL [Concomitant]
     Indication: GASTROOESOPHAGEAL REFLUX DISEASE
  10. ANTIHYPERTENSIVE DRUGS [Concomitant]

REACTIONS (13)
  - ARTHROPATHY [None]
  - ASTHENIA [None]
  - CATARACT [None]
  - CATARACT OPERATION [None]
  - COUGH [None]
  - DEATH [None]
  - DIARRHOEA [None]
  - GLARE [None]
  - MALAISE [None]
  - MUSCULAR WEAKNESS [None]
  - PRURITUS [None]
  - RASH [None]
  - VISUAL IMPAIRMENT [None]
